FAERS Safety Report 8910491 (Version 6)
Quarter: 2013Q1

REPORT INFORMATION
  Report Type: Spontaneous
  Country: JP (occurrence: JP)
  Receive Date: 20121114
  Receipt Date: 20130326
  Transmission Date: 20140127
  Serious: Yes (Other)
  Sender: FDA-Public Use
  Company Number: JP-PFIZER INC-2012282815

PATIENT
  Age: 75 Year
  Sex: Male
  Weight: 50 kg

DRUGS (11)
  1. CELECOX [Suspect]
     Indication: BACK PAIN
     Dosage: 100 MG, 2X/DAY
     Route: 048
     Dates: start: 20121020, end: 20121030
  2. MOHRUS L [Concomitant]
     Dosage: UNK
     Route: 062
     Dates: start: 20121031
  3. MUCODYNE [Concomitant]
     Dosage: UNK
     Route: 048
     Dates: start: 20121031
  4. BISOLVON [Concomitant]
     Dosage: UNK
     Route: 048
     Dates: start: 20121031
  5. CLARITH [Concomitant]
     Dosage: UNK
     Route: 048
     Dates: start: 20121031
  6. ALFASULY [Concomitant]
     Dosage: UNK
     Dates: start: 20121031
  7. MUCOSTA [Concomitant]
     Dosage: UNK
     Dates: start: 20121020, end: 20121030
  8. PREDONINE [Concomitant]
     Dosage: 5 MG, 1X/DAY
     Route: 048
  9. ALLELOCK [Concomitant]
     Dosage: BID
     Route: 048
  10. TOPSYM [Concomitant]
     Dosage: UNK
     Dates: end: 20121031
  11. LOCOID [Concomitant]
     Dosage: UNK
     Dates: end: 20121031

REACTIONS (3)
  - Erythema multiforme [Recovered/Resolved]
  - Chest pain [Recovered/Resolved]
  - Dysphonia [Recovering/Resolving]
